FAERS Safety Report 7989374-2 (Version None)
Quarter: 2011Q4

REPORT INFORMATION
  Report Type: 
  Country: None (occurrence: None)
  Receive Date: 20111219
  Receipt Date: 20111207
  Transmission Date: 20120403
  Serious: Yes (Hospitalization)
  Sender: FDA-Public Use
  Company Number: US-JNJFOC-20111203742

PATIENT
  Age: 30 Year
  Sex: Male

DRUGS (4)
  1. SOLU-MEDROL [Concomitant]
     Indication: PREMEDICATION
     Route: 065
  2. REMICADE [Suspect]
     Indication: CROHN'S DISEASE
     Route: 042
  3. REMICADE [Suspect]
     Route: 042
  4. ACETAMINOPHEN [Concomitant]
     Indication: PREMEDICATION
     Route: 065

REACTIONS (7)
  - INFUSION RELATED REACTION [None]
  - CHEST DISCOMFORT [None]
  - HYPERTENSION [None]
  - OEDEMA PERIPHERAL [None]
  - MALAISE [None]
  - THROAT TIGHTNESS [None]
  - APHASIA [None]
